FAERS Safety Report 8334314-X (Version None)
Quarter: 2012Q1

REPORT INFORMATION
  Report Type: 
  Country: None (occurrence: None)
  Receive Date: 20120329
  Receipt Date: 20100528
  Transmission Date: 20120608
  Serious: Yes (Hospitalization)
  Sender: FDA-Public Use
  Company Number: PHHY2010US35281

PATIENT
  Age: 74 Year
  Sex: Male

DRUGS (1)
  1. EXELON [Suspect]
     Dosage: 4.6 MG, UNK, TRANSDERMAL, 9.5 MG/24 HRS, TRANSDERMAL
     Route: 062
     Dates: start: 20100201

REACTIONS (4)
  - URTICARIA [None]
  - PRURITUS GENERALISED [None]
  - TREMOR [None]
  - RASH [None]
